FAERS Safety Report 9217457 (Version 1)
Quarter: 2013Q2

REPORT INFORMATION
  Report Type: Spontaneous
  Country: US (occurrence: US)
  Receive Date: 20130408
  Receipt Date: 20130408
  Transmission Date: 20140414
  Serious: Yes (Other)
  Sender: FDA-Public Use
  Company Number: US-BAYER-2013-043779

PATIENT
  Age: 81 Year
  Sex: Female
  Weight: 68.03 kg

DRUGS (3)
  1. ALEVE TABLET [Suspect]
     Dosage: UNK UNK, ONCE
  2. LISINOPRIL [Concomitant]
  3. EYE [Concomitant]

REACTIONS (1)
  - Hallucination [Recovered/Resolved]
